FAERS Safety Report 14586047 (Version 2)
Quarter: 2018Q1

REPORT INFORMATION
  Report Type: Spontaneous
  Country: US (occurrence: US)
  Receive Date: 20180301
  Receipt Date: 20180312
  Transmission Date: 20180509
  Serious: Yes (Other)
  Sender: FDA-Public Use
  Company Number: PHEH2018US007163

PATIENT
  Age: 67 Year
  Sex: Female
  Weight: 68 kg

DRUGS (1)
  1. CLINDAMYCIN. [Suspect]
     Active Substance: CLINDAMYCIN
     Indication: VULVAR EROSION
     Dosage: BID
     Route: 061
     Dates: start: 20180216, end: 20180217

REACTIONS (5)
  - Hypersensitivity [Unknown]
  - Dysphagia [Recovered/Resolved]
  - Speech disorder [Unknown]
  - Dyspnoea [Unknown]
  - Sensation of foreign body [Recovered/Resolved]

NARRATIVE: CASE EVENT DATE: 20180216
